FAERS Safety Report 10367535 (Version 5)
Quarter: 2015Q1

REPORT INFORMATION
  Report Type: Spontaneous
  Country: CA (occurrence: CA)
  Receive Date: 20140807
  Receipt Date: 20150101
  Transmission Date: 20150720
  Serious: Yes (Hospitalization, Other)
  Sender: FDA-Public Use
  Company Number: CA-ROCHE-1444959

PATIENT
  Sex: Female

DRUGS (8)
  1. XOLAIR [Suspect]
     Active Substance: OMALIZUMAB
     Route: 058
     Dates: start: 20130123
  2. ADVAIR HFA [Concomitant]
     Active Substance: FLUTICASONE PROPIONATE\SALMETEROL XINAFOATE
  3. XOLAIR [Suspect]
     Active Substance: OMALIZUMAB
     Route: 058
     Dates: start: 20141021
  4. XOLAIR [Suspect]
     Active Substance: OMALIZUMAB
     Route: 058
     Dates: start: 20131029
  5. VENTOLIN [Concomitant]
     Active Substance: ALBUTEROL SULFATE
  6. AVAMYS [Concomitant]
     Active Substance: FLUTICASONE FUROATE
  7. XOLAIR [Suspect]
     Active Substance: OMALIZUMAB
     Indication: ASTHMA
     Route: 058
     Dates: start: 20121015
  8. PREDNISONE. [Concomitant]
     Active Substance: PREDNISONE

REACTIONS (21)
  - Blood pressure systolic increased [Unknown]
  - Chest discomfort [Unknown]
  - Influenza [Recovering/Resolving]
  - Gait disturbance [Unknown]
  - Pain in extremity [Recovering/Resolving]
  - Cataract [Unknown]
  - Cough [Unknown]
  - Respiratory tract congestion [Unknown]
  - Joint swelling [Unknown]
  - Wheezing [Unknown]
  - Body temperature increased [Not Recovered/Not Resolved]
  - Dyspnoea [Unknown]
  - Asthenia [Unknown]
  - Respiratory disorder [Unknown]
  - Rhinorrhoea [Unknown]
  - Arthralgia [Unknown]
  - Weight decreased [Unknown]
  - Malaise [Unknown]
  - Peripheral swelling [Unknown]
  - Sinusitis [Recovering/Resolving]
  - Fatigue [Unknown]
